FAERS Safety Report 9355607 (Version 1)
Quarter: 2013Q2

REPORT INFORMATION
  Report Type: Spontaneous
  Country: JP (occurrence: JP)
  Receive Date: 20130619
  Receipt Date: 20130619
  Transmission Date: 20140414
  Serious: Yes (Other)
  Sender: FDA-Public Use
  Company Number: JP-ASTELLAS-2013JP006334

PATIENT
  Sex: Female

DRUGS (3)
  1. VESICARE [Suspect]
     Dosage: 5 MG, UID/QD
     Route: 048
     Dates: start: 20130507, end: 20130529
  2. ATELEC [Concomitant]
     Dosage: UNK
     Route: 048
  3. TANATRIL [Concomitant]
     Dosage: UNK
     Route: 048

REACTIONS (1)
  - Ageusia [Unknown]
